FAERS Safety Report 10745644 (Version 1)
Quarter: 2015Q1

REPORT INFORMATION
  Report Type: Report from Study
  Country: JP (occurrence: JP)
  Receive Date: 20150128
  Receipt Date: 20150128
  Transmission Date: 20150721
  Serious: Yes (Hospitalization)
  Sender: FDA-Public Use
  Company Number: JP-EISAI MEDICAL RESEARCH-E2020-11112-CLI-JP

PATIENT
  Age: 70 Year
  Sex: Female
  Weight: 55 kg

DRUGS (32)
  1. RIVOTRIL [Suspect]
     Active Substance: CLONAZEPAM
     Route: 048
     Dates: start: 20101115, end: 20110612
  2. SYMMETREL [Suspect]
     Active Substance: AMANTADINE HYDROCHLORIDE
     Indication: PARKINSON^S DISEASE
     Route: 048
     Dates: start: 20090226, end: 20100609
  3. SYMMETREL [Suspect]
     Active Substance: AMANTADINE HYDROCHLORIDE
     Route: 048
     Dates: start: 20100809
  4. TIZANIN [Suspect]
     Active Substance: TIZANIDINE
     Indication: BACK PAIN
  5. DOPACOL [Suspect]
     Active Substance: CARBIDOPA\LEVODOPA
     Route: 048
     Dates: start: 20110308, end: 20110413
  6. GASMOTIN [Suspect]
     Active Substance: MOSAPRIDE CITRATE
     Indication: PROPHYLAXIS
     Route: 048
  7. RIVOTRIL [Suspect]
     Active Substance: CLONAZEPAM
     Route: 048
     Dates: start: 20100315, end: 20101114
  8. MAGMITT [Suspect]
     Active Substance: MAGNESIUM OXIDE
     Route: 048
     Dates: start: 20121016
  9. SYMMETREL [Suspect]
     Active Substance: AMANTADINE HYDROCHLORIDE
     Route: 048
     Dates: start: 20100610, end: 20100808
  10. TIZANIN [Suspect]
     Active Substance: TIZANIDINE
     Indication: PARKINSON^S DISEASE
     Route: 048
     Dates: start: 20071220
  11. DOPACOL [Suspect]
     Active Substance: CARBIDOPA\LEVODOPA
     Route: 048
     Dates: start: 20090713, end: 20110307
  12. DOPACOL [Suspect]
     Active Substance: CARBIDOPA\LEVODOPA
     Route: 048
     Dates: start: 20120126
  13. EURODIN [Suspect]
     Active Substance: ESTAZOLAM
     Indication: INSOMNIA
     Route: 048
     Dates: start: 20120918, end: 20121210
  14. DOPACOL [Suspect]
     Active Substance: CARBIDOPA\LEVODOPA
     Route: 048
     Dates: start: 20110414, end: 20120125
  15. COMTAN [Suspect]
     Active Substance: ENTACAPONE
     Indication: PARKINSON^S DISEASE
     Route: 048
     Dates: start: 20090615
  16. ADOFEED [Suspect]
     Active Substance: FLURBIPROFEN
     Indication: BACK PAIN
     Dosage: UNKNOWN
     Dates: start: 20080619
  17. SODIUM PICOSULFATE [Suspect]
     Active Substance: SODIUM PICOSULFATE
     Indication: CONSTIPATION
     Route: 048
     Dates: start: 20121016
  18. DONEPEZIL [Suspect]
     Active Substance: DONEPEZIL
     Route: 048
     Dates: start: 20111020
  19. GASMOTIN [Suspect]
     Active Substance: MOSAPRIDE CITRATE
     Indication: CHRONIC GASTRITIS
     Route: 048
  20. MAGMITT [Suspect]
     Active Substance: MAGNESIUM OXIDE
     Indication: CONSTIPATION
     Route: 048
     Dates: start: 20070710, end: 20110410
  21. DOPACOL [Suspect]
     Active Substance: CARBIDOPA\LEVODOPA
     Indication: PARKINSON^S DISEASE
     Route: 048
     Dates: start: 20090525, end: 20090712
  22. BROTIZOLAM [Suspect]
     Active Substance: BROTIZOLAM
     Indication: INSOMNIA
     Route: 048
     Dates: start: 20110414
  23. LIPITOR [Suspect]
     Active Substance: ATORVASTATIN CALCIUM
     Indication: HYPERLIPIDAEMIA
     Route: 048
     Dates: start: 20120713
  24. MAGMITT [Suspect]
     Active Substance: MAGNESIUM OXIDE
     Route: 048
     Dates: start: 20110411, end: 20121015
  25. DONEPEZIL [Suspect]
     Active Substance: DONEPEZIL
     Indication: PARKINSON^S DISEASE
     Route: 048
     Dates: start: 20111012, end: 20111019
  26. GASMET [Suspect]
     Active Substance: FAMOTIDINE
     Indication: CHRONIC GASTRITIS
     Route: 048
     Dates: start: 20110506
  27. LAXOBERON [Suspect]
     Active Substance: SODIUM PICOSULFATE
     Indication: CONSTIPATION
     Route: 048
     Dates: start: 20120705
  28. RIVOTRIL [Suspect]
     Active Substance: CLONAZEPAM
     Route: 048
     Dates: start: 20110613
  29. CABASER [Suspect]
     Active Substance: CABERGOLINE
     Indication: PARKINSON^S DISEASE
     Route: 048
     Dates: start: 20111117
  30. EURODIN [Suspect]
     Active Substance: ESTAZOLAM
     Route: 048
     Dates: start: 20121211
  31. RIVOTRIL [Suspect]
     Active Substance: CLONAZEPAM
     Indication: INSOMNIA
     Route: 048
     Dates: start: 20070709, end: 20100314
  32. HALFDIGOXIN-KYTAB [Suspect]
     Active Substance: DIGOXIN
     Indication: VENTRICULAR EXTRASYSTOLES
     Route: 048
     Dates: start: 20120315

REACTIONS (6)
  - Coronary artery disease [Not Recovered/Not Resolved]
  - Epigastric discomfort [None]
  - Deafness neurosensory [Recovering/Resolving]
  - Electrocardiogram ST segment depression [None]
  - Supraventricular extrasystoles [None]
  - Ventricular extrasystoles [None]

NARRATIVE: CASE EVENT DATE: 20120702
